FAERS Safety Report 6148415-8 (Version None)
Quarter: 2009Q2

REPORT INFORMATION
  Report Type: 
  Country: None (occurrence: None)
  Receive Date: 20090406
  Receipt Date: 20090406
  Transmission Date: 20091009
  Serious: Yes (Hospitalization)
  Sender: FDA-Public Use
  Company Number: None

PATIENT
  Age: 86 Year
  Sex: Male

DRUGS (1)
  1. SULFAMETHOXAZOLE AND TRIMETHOPRIM [Suspect]
     Indication: URINE ANALYSIS ABNORMAL
     Dosage: 1 TABLET EVERY 12 HOURS PO 3 DOSES
     Route: 048

REACTIONS (4)
  - ASTHENIA [None]
  - CHILLS [None]
  - RENAL FAILURE ACUTE [None]
  - TREMOR [None]
